FAERS Safety Report 25963083 (Version 3)
Quarter: 2025Q4

REPORT INFORMATION
  Report Type: Spontaneous
  Country: US (occurrence: None)
  Receive Date: 20251027
  Receipt Date: 20251216
  Transmission Date: 20260117
  Serious: Yes (Other)
  Sender: UCB
  Company Number: US-UCBSA-2025067000

PATIENT

DRUGS (1)
  1. BIMZELX [Suspect]
     Active Substance: BIMEKIZUMAB-BKZX
     Indication: Psoriatic arthropathy
     Dosage: 320 MILLIGRAM, EV 4 WEEKS

REACTIONS (14)
  - Psoriatic arthropathy [Unknown]
  - Injection site reaction [Unknown]
  - Rash [Unknown]
  - Fatigue [Unknown]
  - Arthralgia [Unknown]
  - Acne [Unknown]
  - Fungal infection [Unknown]
  - Myalgia [Unknown]
  - Headache [Unknown]
  - Liver function test abnormal [Unknown]
  - Tonsillar hypertrophy [Unknown]
  - Erythema [Unknown]
  - Off label use [Unknown]
  - Drug ineffective [Unknown]
